FAERS Safety Report 9847843 (Version 1)
Quarter: 2014Q1

REPORT INFORMATION
  Report Type: Spontaneous
  Country: ES (occurrence: ES)
  Receive Date: 20140128
  Receipt Date: 20140128
  Transmission Date: 20141002
  Serious: Yes (Other)
  Sender: FDA-Public Use
  Company Number: ES-BRISTOL-MYERS SQUIBB COMPANY-20067609

PATIENT
  Age: 70 Year
  Sex: Female

DRUGS (1)
  1. IPILIMUMAB [Suspect]

REACTIONS (1)
  - Deafness bilateral [Unknown]
